FAERS Safety Report 6266554-8 (Version None)
Quarter: 2009Q3

REPORT INFORMATION
  Report Type: 
  Country: None (occurrence: None)
  Receive Date: 20090710
  Receipt Date: 20090630
  Transmission Date: 20100115
  Serious: Yes (Other)
  Sender: FDA-Public Use
  Company Number: 2009SP014541

PATIENT
  Sex: Female

DRUGS (3)
  1. AFRIN SEVERE CONGESTION SPRAY (1 PCT) [Suspect]
     Indication: DRUG USE FOR UNKNOWN INDICATION
     Dosage: NAS
     Route: 045
  2. AFRIN NO DRIP EXTRA MOISTURIZING NASAL SPRAY (1 PCT) [Suspect]
     Indication: DRUG USE FOR UNKNOWN INDICATION
     Dosage: NAS
     Route: 045
  3. AFRIN EXTRA MOISTURIZING NASAL SPRAY (1 PCT) [Suspect]
     Indication: DRUG USE FOR UNKNOWN INDICATION
     Dosage: NAS
     Route: 045

REACTIONS (1)
  - DRUG DEPENDENCE [None]
